FAERS Safety Report 26085007 (Version 1)
Quarter: 2025Q4

REPORT INFORMATION
  Report Type: Report from Study
  Country: US (occurrence: US)
  Receive Date: 20251125
  Receipt Date: 20251125
  Transmission Date: 20260118
  Serious: Yes (Other)
  Sender: ABBVIE
  Company Number: US-ABBVIE-6557186

PATIENT
  Age: 36 Year
  Sex: Female

DRUGS (1)
  1. RINVOQ [Suspect]
     Active Substance: UPADACITINIB
     Indication: Dermatitis atopic
     Dosage: DRUG STOPPED ON 2025
     Route: 048
     Dates: start: 20251001

REACTIONS (1)
  - Triple positive breast cancer [Not Recovered/Not Resolved]

NARRATIVE: CASE EVENT DATE: 20251030
